FAERS Safety Report 15235480 (Version 1)
Quarter: 2018Q3

REPORT INFORMATION
  Report Type: Spontaneous
  Country: US (occurrence: US)
  Receive Date: 20180709
  Receipt Date: 20180709
  Transmission Date: 20181010
  Serious: Yes (Life-Threatening, Hospitalization, Disabling, Other)
  Sender: FDA-Public Use
  Company Number: None

PATIENT
  Age: 46 Year
  Sex: Female
  Weight: 60.75 kg

DRUGS (29)
  1. CIPRO [Suspect]
     Active Substance: CIPROFLOXACIN HYDROCHLORIDE
     Indication: BRONCHITIS
     Dosage: 1 TABLET(S);OTHER FREQUENCY:FULL COURSES PRESC;?
     Route: 048
  2. LEVAQUIN [Suspect]
     Active Substance: LEVOFLOXACIN
     Indication: BRONCHITIS
  3. XANAX XR [Concomitant]
     Active Substance: ALPRAZOLAM
  4. CIPRO [Suspect]
     Active Substance: CIPROFLOXACIN HYDROCHLORIDE
     Indication: SINUSITIS
     Dosage: 1 TABLET(S);OTHER FREQUENCY:FULL COURSES PRESC;?
     Route: 048
  5. CIPRO [Suspect]
     Active Substance: CIPROFLOXACIN HYDROCHLORIDE
     Indication: UPPER RESPIRATORY TRACT INFECTION
     Dosage: 1 TABLET(S);OTHER FREQUENCY:FULL COURSES PRESC;?
     Route: 048
  6. BENTYL [Concomitant]
     Active Substance: DICYCLOMINE HYDROCHLORIDE
  7. MYDAYIS [Concomitant]
     Active Substance: AMPHETAMINE ASPARTATE\AMPHETAMINE SULFATE\DEXTROAMPHETAMINE SACCHARATE\DEXTROAMPHETAMINE SULFATE
  8. VITAMIN B12 [Concomitant]
     Active Substance: CYANOCOBALAMIN
  9. CIPRO [Suspect]
     Active Substance: CIPROFLOXACIN HYDROCHLORIDE
     Indication: URINARY TRACT INFECTION
     Dosage: 1 TABLET(S);OTHER FREQUENCY:FULL COURSES PRESC;?
     Route: 048
  10. ASPERCREME WITH LIDOCAINE [Concomitant]
     Active Substance: LIDOCAINE
  11. ESTRADIOL. [Concomitant]
     Active Substance: ESTRADIOL
  12. TRINTELLIX [Concomitant]
     Active Substance: VORTIOXETINE HYDROBROMIDE
  13. HYDROXYZINE [Concomitant]
     Active Substance: HYDROXYZINE HYDROCHLORIDE
  14. CIPRO [Suspect]
     Active Substance: CIPROFLOXACIN HYDROCHLORIDE
     Indication: LOWER RESPIRATORY TRACT INFECTION
     Dosage: 1 TABLET(S);OTHER FREQUENCY:FULL COURSES PRESC;?
     Route: 048
  15. LEVAQUIN [Suspect]
     Active Substance: LEVOFLOXACIN
     Indication: SINUSITIS
  16. ARMOUR THYROID [Concomitant]
     Active Substance: THYROID, PORCINE
  17. PROGESTERONE. [Concomitant]
     Active Substance: PROGESTERONE
  18. PEPCID [Concomitant]
     Active Substance: FAMOTIDINE
  19. VITAMIN D3 [Concomitant]
     Active Substance: CHOLECALCIFEROL
  20. LEVAQUIN [Suspect]
     Active Substance: LEVOFLOXACIN
     Indication: UPPER RESPIRATORY TRACT INFECTION
  21. SINGULAIR [Concomitant]
     Active Substance: MONTELUKAST SODIUM
  22. AMBIEN [Concomitant]
     Active Substance: ZOLPIDEM TARTRATE
  23. ALLERGY INJECTIONS [Concomitant]
  24. PROBIOTICS [Concomitant]
     Active Substance: PROBIOTICS NOS
  25. LEVAQUIN [Suspect]
     Active Substance: LEVOFLOXACIN
     Indication: URINARY TRACT INFECTION
  26. BALSALAZIDE [Concomitant]
     Active Substance: BALSALAZIDE
  27. CTS SPLINT [Concomitant]
  28. AREDS [Concomitant]
     Active Substance: MINERALS\VITAMINS
  29. TURNERIC [Concomitant]

REACTIONS (41)
  - Confusional state [None]
  - Visual field defect [None]
  - Bacterial infection [None]
  - Cervical spinal stenosis [None]
  - Asthenia [None]
  - Balance disorder [None]
  - Cognitive disorder [None]
  - Dysarthria [None]
  - Dehydration [None]
  - Tendonitis [None]
  - Intervertebral disc degeneration [None]
  - Anxiety [None]
  - Fall [None]
  - Muscular weakness [None]
  - Vomiting [None]
  - Carpal tunnel syndrome [None]
  - Hypoaesthesia [None]
  - Stress [None]
  - Arthritis [None]
  - Neck pain [None]
  - Back pain [None]
  - Loss of employment [None]
  - Angle closure glaucoma [None]
  - Pain [None]
  - Tendon injury [None]
  - Nerve injury [None]
  - Head injury [None]
  - Headache [None]
  - Diarrhoea [None]
  - Gait disturbance [None]
  - Cataract [None]
  - Retinitis pigmentosa [None]
  - Amnesia [None]
  - Insomnia [None]
  - Panic attack [None]
  - Loss of consciousness [None]
  - Visual impairment [None]
  - Fracture [None]
  - Swelling [None]
  - Loss of personal independence in daily activities [None]
  - Fine motor skill dysfunction [None]

NARRATIVE: CASE EVENT DATE: 20080310
